FAERS Safety Report 7809435-8 (Version None)
Quarter: 2011Q4

REPORT INFORMATION
  Report Type: 
  Country: None (occurrence: None)
  Receive Date: 20111012
  Receipt Date: 20111008
  Transmission Date: 20120403
  Serious: No
  Sender: FDA-Public Use
  Company Number: US-B.I. PHARMACEUTICALS,INC./RIDGEFIELD-2011-BP-23892BP

PATIENT
  Age: 50 Year
  Sex: Female

DRUGS (4)
  1. VITAMIN TAB [Concomitant]
     Indication: SUPPLEMENTATION THERAPY
  2. SOTALOL HCL [Concomitant]
     Indication: ATRIAL FLUTTER
  3. PRADAXA [Suspect]
     Indication: ATRIAL FLUTTER
     Dosage: 300 MG
     Route: 048
     Dates: start: 20110802
  4. TRIAMTERENE AND HYDROCHLOROTHIAZIDE [Suspect]
     Indication: DIURETIC THERAPY
     Dates: end: 20111006

REACTIONS (3)
  - PRURITUS GENERALISED [None]
  - RASH [None]
  - ARTERIAL OCCLUSIVE DISEASE [None]
